FAERS Safety Report 16744920 (Version 1)
Quarter: 2019Q4

REPORT INFORMATION
  Report Type: Spontaneous
  Country: CA (occurrence: CA)
  Receive Date: 20190827
  Receipt Date: 20190827
  Transmission Date: 20200122
  Serious: No
  Sender: FDA-Public Use
  Company Number: None

PATIENT
  Age: 28 Year
  Sex: Female
  Weight: 64.35 kg

DRUGS (2)
  1. AIMOVIG [Suspect]
     Active Substance: ERENUMAB-AOOE
     Indication: MIGRAINE
     Dosage: ?          QUANTITY:1 1 INJECTOR;OTHER FREQUENCY:ONCE A MONTJ;?
     Route: 030
     Dates: start: 20190731
  2. TRAMADOL/ACETAMINOPHEN 37.5/375 MG [Concomitant]

REACTIONS (1)
  - Aphthous ulcer [None]

NARRATIVE: CASE EVENT DATE: 20190802
